FAERS Safety Report 5157985-8 (Version None)
Quarter: 2006Q4

REPORT INFORMATION
  Report Type: 
  Country: None (occurrence: None)
  Receive Date: 20061127
  Receipt Date: 20061121
  Transmission Date: 20070319
  Serious: Yes (Hospitalization)
  Sender: FDA-Public Use
  Company Number: AU-BOEHRINGER INGELHEIM PHARMACEUTICALS, INC.-2006-BP-13660AU

PATIENT
  Sex: Male
  Weight: 75 kg

DRUGS (10)
  1. MICARDIS [Suspect]
  2. ACTOS [Suspect]
     Route: 048
     Dates: start: 20051206, end: 20060115
  3. EXETROL [Suspect]
     Indication: DIABETES MELLITUS
     Dates: start: 20051107, end: 20051223
  4. PRAVACHOL [Suspect]
     Indication: METABOLIC DISORDER
     Dates: end: 20051223
  5. LIPIDIL [Suspect]
     Indication: METABOLIC DISORDER
     Dates: start: 20051107, end: 20051223
  6. AVANDIA [Suspect]
     Indication: DIABETES MELLITUS
     Dates: start: 20051210
  7. RAMIPRIL [Concomitant]
  8. IODISED OIL [Concomitant]
  9. AMARYL [Concomitant]
     Indication: DIABETES MELLITUS
  10. METFORMIN HYDROCHLORIDE [Concomitant]
     Indication: DIABETES MELLITUS

REACTIONS (9)
  - ANAEMIA [None]
  - BLOOD BILIRUBIN INCREASED [None]
  - BLOOD LACTATE DEHYDROGENASE INCREASED [None]
  - DECREASED APPETITE [None]
  - HEPATIC FAILURE [None]
  - LIPIDOSIS [None]
  - LIVER FUNCTION TEST ABNORMAL [None]
  - NAUSEA [None]
  - WEIGHT DECREASED [None]
